FAERS Safety Report 25177149 (Version 1)
Quarter: 2025Q2

REPORT INFORMATION
  Report Type: Spontaneous
  Country: CN (occurrence: CN)
  Receive Date: 20250409
  Receipt Date: 20250409
  Transmission Date: 20250717
  Serious: Yes (Hospitalization, Other)
  Sender: ANI
  Company Number: CN-ANIPHARMA-022330

PATIENT
  Age: 35 Year
  Sex: Female
  Weight: 40 kg

DRUGS (8)
  1. FLUVOXAMINE MALEATE [Suspect]
     Active Substance: FLUVOXAMINE MALEATE
     Indication: Behaviour disorder
     Route: 048
     Dates: start: 20250213, end: 20250218
  2. SERTRALINE [Concomitant]
     Active Substance: SERTRALINE HYDROCHLORIDE
     Indication: Behaviour disorder
     Dates: start: 20250204
  3. OLANZAPINE [Concomitant]
     Active Substance: OLANZAPINE
     Indication: Behaviour disorder
     Route: 048
     Dates: start: 20250204, end: 20250211
  4. OLANZAPINE [Concomitant]
     Active Substance: OLANZAPINE
     Indication: Emotional disorder
     Route: 048
     Dates: start: 20250204, end: 20250211
  5. OLANZAPINE [Concomitant]
     Active Substance: OLANZAPINE
     Indication: Behaviour disorder
     Route: 048
     Dates: start: 20250211, end: 20250218
  6. OLANZAPINE [Concomitant]
     Active Substance: OLANZAPINE
     Indication: Emotional disorder
     Route: 048
     Dates: start: 20250211, end: 20250218
  7. SERTRALINE [Concomitant]
     Active Substance: SERTRALINE HYDROCHLORIDE
     Indication: Emotional disorder
     Dates: start: 20250204
  8. FLUVOXAMINE MALEATE [Suspect]
     Active Substance: FLUVOXAMINE MALEATE
     Indication: Emotional disorder
     Route: 048
     Dates: start: 20250213, end: 20250218

REACTIONS (1)
  - Epilepsy [Recovered/Resolved]

NARRATIVE: CASE EVENT DATE: 20250217
